FAERS Safety Report 19281396 (Version 2)
Quarter: 2023Q1

REPORT INFORMATION
  Report Type: Report from Study
  Country: NL (occurrence: NL)
  Receive Date: 20210520
  Receipt Date: 20230110
  Transmission Date: 20230417
  Serious: Yes (Hospitalization)
  Sender: FDA-Public Use
  Company Number: NL-GLAXOSMITHKLINE-NL2020GSK214950

PATIENT
  Age: 69 Year
  Sex: Female

DRUGS (12)
  1. DOSTARLIMAB [Suspect]
     Active Substance: DOSTARLIMAB
     Indication: Endometrial cancer
     Dosage: 500 MG
     Route: 042
     Dates: start: 20201008, end: 20201008
  2. CARBOPLATIN [Suspect]
     Active Substance: CARBOPLATIN
     Indication: Endometrial cancer
     Dosage: 5 AUC (550 MG)
     Route: 042
     Dates: start: 20201008, end: 20201008
  3. PACLITAXEL [Suspect]
     Active Substance: PACLITAXEL
     Indication: Endometrial cancer
     Dosage: 175 MG/M2
     Route: 042
     Dates: start: 20201008, end: 20201008
  4. METOCLOPRAMIDE [Concomitant]
     Active Substance: METOCLOPRAMIDE
     Indication: Prophylaxis of nausea and vomiting
     Dosage: 10 MG, Z (OTHER-AS NEEDED WITH MAXIMUM OF THREEE TIMES A DAILY)
     Route: 048
     Dates: start: 20200929
  5. GRANISETRON [Concomitant]
     Active Substance: GRANISETRON
     Indication: Prophylaxis
     Dosage: 2 MG, Z (ONCE DAILY ON EVERY D1 OF EVERY CHEMOTHERAPY CYCLE)
     Route: 048
     Dates: start: 20201008
  6. DEXAMETHASONE [Concomitant]
     Active Substance: DEXAMETHASONE
     Indication: Prophylaxis
     Dosage: 8 MG, Z (ONCE DAILY ON D1, 2 AND 3 OF EVERY CHEMOTHERAPY CYCLE)
     Route: 048
     Dates: start: 20201008
  7. CLEMASTINE [Concomitant]
     Active Substance: CLEMASTINE
     Indication: Prophylaxis
     Dosage: 2 MG, Z (ONCE DAILY ON D1 OF EVERY CHEMOTHERAPY CYCLE)
     Route: 048
     Dates: start: 20201008
  8. AMLODIPINE [Concomitant]
     Active Substance: AMLODIPINE BESYLATE
     Indication: Hypertension
     Dosage: 5 MG, QD
     Route: 048
     Dates: start: 20201005
  9. TEMAZEPAM [Concomitant]
     Active Substance: TEMAZEPAM
     Indication: Insomnia
     Dosage: 10 MG, PRN
     Route: 048
     Dates: start: 20201017, end: 20201028
  10. OXYCODONE [Concomitant]
     Active Substance: OXYCODONE
     Indication: Neuralgia
     Dosage: 5 MG, Z (AS NEEDED WITH MAXIMUM OF 6 TIMES A DAILY)
     Route: 048
     Dates: start: 20201022, end: 20201030
  11. AMITRYPTYLINE (AMITRIPTYLINI HYDROCHLORIDUM) [Concomitant]
     Indication: Neuralgia
     Dosage: 25 MG, QD
     Route: 048
     Dates: start: 20201022
  12. MIRTAZAPINE [Concomitant]
     Active Substance: MIRTAZAPINE
     Indication: Insomnia
     Dosage: 15 MG, QD
     Route: 048
     Dates: start: 20201028, end: 20201028

REACTIONS (1)
  - Acute kidney injury [Not Recovered/Not Resolved]

NARRATIVE: CASE EVENT DATE: 20201028
